FAERS Safety Report 8951424 (Version 2)
Quarter: 2013Q1

REPORT INFORMATION
  Report Type: Spontaneous
  Country: IT (occurrence: None)
  Receive Date: 20121129
  Receipt Date: 20121217
  Transmission Date: 20140127
  Serious: Yes (Life-Threatening)
  Sender: FDA-Public Use
  Company Number: INT_00157_2012

PATIENT
  Age: 4 Year
  Sex: Male

DRUGS (1)
  1. CEFTRIAXONE [Suspect]
     Indication: LUNG INFECTION
     Route: 042
     Dates: start: 20121022, end: 20121022

REACTIONS (2)
  - Angioedema [None]
  - Drug hypersensitivity [None]
